FAERS Safety Report 22606165 (Version 1)
Quarter: 2023Q2

REPORT INFORMATION
  Report Type: Spontaneous
  Country: US (occurrence: US)
  Receive Date: 20230615
  Receipt Date: 20230615
  Transmission Date: 20230722
  Serious: No
  Sender: FDA-Public Use
  Company Number: US-GLAXOSMITHKLINE-USCH2023027004

PATIENT

DRUGS (1)
  1. FLUTICASONE [Suspect]
     Active Substance: FLUTICASONE
     Indication: Product used for unknown indication
     Dosage: UNK
     Dates: start: 20230530

REACTIONS (6)
  - Nasal oedema [Unknown]
  - Rhinorrhoea [Unknown]
  - Skin erosion [Unknown]
  - Skin discolouration [Unknown]
  - Epistaxis [Unknown]
  - Infection [Unknown]

NARRATIVE: CASE EVENT DATE: 20230101
